FAERS Safety Report 22011665 (Version 2)
Quarter: 2023Q1

REPORT INFORMATION
  Report Type: Spontaneous
  Country: JP (occurrence: JP)
  Receive Date: 20230220
  Receipt Date: 20230302
  Transmission Date: 20230418
  Serious: Yes (Other)
  Sender: FDA-Public Use
  Company Number: JP-GSKJP-JP2022JPN101864AA

PATIENT

DRUGS (1)
  1. ZOVIRAX [Suspect]
     Active Substance: ACYCLOVIR
     Indication: Herpes zoster
     Dosage: UNK
     Route: 042

REACTIONS (4)
  - Toxic encephalopathy [Unknown]
  - Locked-in syndrome [Unknown]
  - Speech disorder [Recovering/Resolving]
  - Hypertonia [Recovering/Resolving]
